FAERS Safety Report 9275875 (Version 1)
Quarter: 2013Q2

REPORT INFORMATION
  Report Type: Spontaneous
  Country: TW (occurrence: ES)
  Receive Date: 20130507
  Receipt Date: 20130507
  Transmission Date: 20140414
  Serious: Yes (Other)
  Sender: FDA-Public Use
  Company Number: ES-PFIZER INC-2013136962

PATIENT
  Age: 43 Year
  Sex: Male

DRUGS (4)
  1. OXALIPLATIN [Suspect]
     Indication: COLON CANCER METASTATIC
     Dosage: UNK, CYCLIC (OVER A PERIOD OF TWO HOURS)
     Route: 042
  2. LEUCOVORIN [Concomitant]
     Indication: COLON CANCER METASTATIC
     Dosage: UNK, CYCLIC (OVER A PERIOD OF TWO HOURS)
     Route: 042
  3. 5-FU [Concomitant]
     Indication: COLON CANCER METASTATIC
     Dosage: UNK, CYCLIC (CONTINUOUS INFUSION DURING 48 HOURS)
     Route: 042
  4. DEXAMETHASONE [Concomitant]
     Indication: PROPHYLAXIS OF NAUSEA AND VOMITING
     Dosage: 12 MG, UNK

REACTIONS (6)
  - Anaphylactic reaction [Unknown]
  - Pruritus generalised [Unknown]
  - Erythema [Unknown]
  - Swelling [Unknown]
  - Respiratory disorder [Unknown]
  - Discomfort [Unknown]
